FAERS Safety Report 19732274 (Version 2)
Quarter: 2021Q3

REPORT INFORMATION
  Report Type: Report from Study
  Country: None (occurrence: SE)
  Receive Date: 20210820
  Receipt Date: 20210826
  Transmission Date: 20211014
  Serious: Yes (Death, Hospitalization, Other)
  Sender: FDA-Public Use
  Company Number: SE-ABBVIE-21K-150-4048170-00

PATIENT
  Sex: Female

DRUGS (2)
  1. DUODOPA [Suspect]
     Active Substance: CARBIDOPA\LEVODOPA
  2. DUODOPA [Suspect]
     Active Substance: CARBIDOPA\LEVODOPA
     Indication: PARKINSON^S DISEASE
     Dosage: MD: 4.5 ML, CONTINUOUS DOSE: 2.3 ML/H, EXTRA DOSE: 0.5 ML, 20 MG/ML 5 MG/ML
     Route: 050
     Dates: start: 20141015

REACTIONS (6)
  - Cardiovascular disorder [Fatal]
  - Arterial thrombosis [Unknown]
  - Superior mesenteric artery syndrome [Fatal]
  - General physical health deterioration [Unknown]
  - Urinary tract infection [Unknown]
  - Device leakage [Unknown]
